FAERS Safety Report 8275255-6 (Version None)
Quarter: 2012Q2

REPORT INFORMATION
  Report Type: 
  Country: None (occurrence: None)
  Receive Date: 20120411
  Receipt Date: 20120402
  Transmission Date: 20120825
  Serious: Yes (Hospitalization)
  Sender: FDA-Public Use
  Company Number: US-ROCHE-1053194

PATIENT
  Sex: Female
  Weight: 75.818 kg

DRUGS (2)
  1. XOLAIR [Suspect]
     Indication: RHINITIS ALLERGIC
  2. XOLAIR [Suspect]
     Indication: ASTHMA

REACTIONS (8)
  - INNER EAR DISORDER [None]
  - OROPHARYNGEAL PAIN [None]
  - PYREXIA [None]
  - VERTIGO [None]
  - PERITONSILLAR ABSCESS [None]
  - HERPES ZOSTER [None]
  - UPPER AIRWAY OBSTRUCTION [None]
  - PHARYNGITIS [None]
